FAERS Safety Report 5677355-3 (Version None)
Quarter: 2008Q1

REPORT INFORMATION
  Report Type: 
  Country: None (occurrence: None)
  Receive Date: 20080320
  Receipt Date: 20080320
  Transmission Date: 20080703
  Serious: Yes (Other)
  Sender: FDA-Public Use
  Company Number: None

PATIENT
  Age: 53 Year
  Sex: Male
  Weight: 81.6475 kg

DRUGS (2)
  1. ZYVOX [Suspect]
     Indication: WOUND INFECTION STAPHYLOCOCCAL
     Dosage: 600MG 2X/DAY PO
     Route: 048
     Dates: start: 20080215, end: 20080316
  2. EFFEXOR [Suspect]
     Indication: DEPRESSION
     Dosage: 150MG 1X/DAY PO
     Route: 048
     Dates: start: 20060101, end: 20080319

REACTIONS (12)
  - AMNESIA [None]
  - ANXIETY [None]
  - ASTHENIA [None]
  - COORDINATION ABNORMAL [None]
  - DISTURBANCE IN ATTENTION [None]
  - FATIGUE [None]
  - INSOMNIA [None]
  - MUSCLE SPASMS [None]
  - NAUSEA [None]
  - PYREXIA [None]
  - RESTLESSNESS [None]
  - VOMITING [None]
